FAERS Safety Report 6286964-2 (Version None)
Quarter: 2009Q3

REPORT INFORMATION
  Report Type: 
  Country: None (occurrence: None)
  Receive Date: 20090724
  Receipt Date: 20090709
  Transmission Date: 20100115
  Serious: Yes (Life-Threatening, Hospitalization)
  Sender: FDA-Public Use
  Company Number: CIP09001905

PATIENT
  Age: 67 Year
  Sex: Female

DRUGS (6)
  1. ACTONEL [Suspect]
     Dosage: 2.5 MG DAILY, ORAL
     Route: 048
     Dates: start: 20040106, end: 20060206
  2. LEDERCORT /00031901/ (TRIAMCINOLONE) [Concomitant]
  3. LIMETHASON /00016002/ (DEXAMETHASONE SODIUM PHOSPHATE) [Concomitant]
  4. RHEUMATREX [Concomitant]
  5. LIPIDIL [Concomitant]
  6. MERISLON /00141802/ (BETAHISTINE HYDROCHLORIDE) [Concomitant]

REACTIONS (8)
  - EXCESSIVE GRANULATION TISSUE [None]
  - GINGIVAL ERYTHEMA [None]
  - GINGIVITIS [None]
  - IMPAIRED HEALING [None]
  - OSTEONECROSIS [None]
  - POST PROCEDURAL DISCHARGE [None]
  - TOOTH EXTRACTION [None]
  - TOOTHACHE [None]
